FAERS Safety Report 5533230-6 (Version None)
Quarter: 2007Q4

REPORT INFORMATION
  Report Type: 
  Country: None (occurrence: None)
  Receive Date: 20071204
  Receipt Date: 20071128
  Transmission Date: 20080405
  Serious: Yes (Congenital Anomaly)
  Sender: FDA-Public Use
  Company Number: A0653467A

PATIENT
  Sex: Female

DRUGS (7)
  1. PAXIL CR [Suspect]
     Indication: ANXIETY
     Dosage: 25MG PER DAY
     Dates: start: 20030101
  2. PAROXETINE HCL [Suspect]
     Indication: ANXIETY
     Dosage: 20MG PER DAY
     Dates: start: 20050301, end: 20050801
  3. PRENATAL VITAMINS [Concomitant]
     Dates: start: 20050301, end: 20050601
  4. PROMETHAZINE [Concomitant]
     Route: 061
     Dates: start: 20041201
  5. ZITHROMAX [Concomitant]
     Dates: start: 20050101
  6. BENZONATATE [Concomitant]
     Dates: start: 20050301
  7. RHINOCORT [Concomitant]
     Dates: start: 20050301

REACTIONS (6)
  - CONGENITAL ANOMALY [None]
  - CONVULSION [None]
  - DEVELOPMENTAL DELAY [None]
  - DRUG EXPOSURE DURING PREGNANCY [None]
  - DYSPNOEA [None]
  - VENTRICULAR SEPTAL DEFECT [None]
